FAERS Safety Report 7292828-8 (Version None)
Quarter: 2011Q1

REPORT INFORMATION
  Report Type: 
  Country: None (occurrence: None)
  Receive Date: 20110203
  Receipt Date: 20110127
  Transmission Date: 20110831
  Serious: Yes (Hospitalization)
  Sender: FDA-Public Use
  Company Number: 8027728

PATIENT
  Sex: Female
  Weight: 61.8 kg

DRUGS (9)
  1. FOSAMAX [Concomitant]
  2. CLARITIN-D [Concomitant]
  3. ACETAMINOPHEN [Concomitant]
  4. PRILOSEC [Concomitant]
  5. JOINT FORMULA [Concomitant]
  6. CITRACAL + D [Concomitant]
  7. CERTOLIZUMAB PEGOL [Suspect]
     Indication: RHEUMATOID ARTHRITIS
     Dosage: 400 MG, 1X/2 WEEKS - NR OF DOSES: 47 SUBCUTANEOUS
     Route: 058
     Dates: start: 20040211, end: 20071017
  8. POTASSIUM [Concomitant]
  9. MULTIVITAMIN [Concomitant]

REACTIONS (33)
  - HEADACHE [None]
  - BLOOD ALBUMIN DECREASED [None]
  - SEPTIC SHOCK [None]
  - ACUTE PRERENAL FAILURE [None]
  - HYPONATRAEMIA [None]
  - BLOOD GLUCOSE INCREASED [None]
  - LYMPHOCYTOSIS [None]
  - HISTOPLASMOSIS DISSEMINATED [None]
  - RIGHT VENTRICULAR DYSFUNCTION [None]
  - DEHYDRATION [None]
  - ABDOMINAL PAIN [None]
  - HEPATIC STEATOSIS [None]
  - PLEURAL EFFUSION [None]
  - PLATELET COUNT DECREASED [None]
  - CEREBRAL ATROPHY [None]
  - HYPOVOLAEMIA [None]
  - ASTHENIA [None]
  - ALBUMIN GLOBULIN RATIO DECREASED [None]
  - HIP ARTHROPLASTY [None]
  - BLOOD CHLORIDE DECREASED [None]
  - MALAISE [None]
  - HYPOTENSION [None]
  - DECREASED APPETITE [None]
  - SPLENOMEGALY [None]
  - GENERAL PHYSICAL HEALTH DETERIORATION [None]
  - HAEMATOCRIT DECREASED [None]
  - CEREBRAL ISCHAEMIA [None]
  - PNEUMONIA [None]
  - LEFT VENTRICULAR DYSFUNCTION [None]
  - GLOBULINS INCREASED [None]
  - PULMONARY OEDEMA [None]
  - FATIGUE [None]
  - DYSPHAGIA [None]
